FAERS Safety Report 9272686 (Version 6)
Quarter: 2013Q4

REPORT INFORMATION
  Report Type: Report from Study
  Country: BR (occurrence: BR)
  Receive Date: 20130506
  Receipt Date: 20131008
  Transmission Date: 20140711
  Serious: Yes (Hospitalization)
  Sender: FDA-Public Use
  Company Number: BR-PFIZER INC-2013105637

PATIENT
  Age: 73 Year
  Sex: Female
  Weight: 70.6 kg

DRUGS (16)
  1. TOFACITINIB CITRATE [Suspect]
     Indication: RHEUMATOID ARTHRITIS
     Dosage: 10 MG, 2X/DAY
     Route: 048
     Dates: start: 20110302, end: 20130223
  2. TOFACITINIB CITRATE [Suspect]
     Dosage: 5 MG, 2X/DAY
     Route: 048
     Dates: start: 20130312, end: 20130312
  3. METHOTREXATE [Concomitant]
     Indication: RHEUMATOID ARTHRITIS
     Dosage: 15 MG, WEEKLY
     Route: 048
     Dates: start: 2008, end: 20130312
  4. FOLIC ACID [Concomitant]
     Indication: RHEUMATOID ARTHRITIS
     Dosage: 15 MG, WEEKLY
     Route: 048
     Dates: start: 2008, end: 20130226
  5. CAPTOPRIL [Concomitant]
     Indication: HYPERTENSION
     Dosage: 50 MG, TWICE DAILY
     Route: 048
     Dates: start: 20110303, end: 20130314
  6. METOPROLOL [Concomitant]
     Indication: SUPRAVENTRICULAR EXTRASYSTOLES
     Dosage: 12.5 MG, ONCE
     Route: 048
     Dates: start: 20120403, end: 20130314
  7. ALENDRONATE SODIUM [Concomitant]
     Indication: OSTEOPOROSIS
     Dosage: 70 MG, WEEKLY
     Route: 048
     Dates: start: 2008, end: 20130313
  8. CALDE [Concomitant]
     Indication: OSTEOPOROSIS
     Dosage: 1 TABLET, ONCE A DAY
     Route: 048
     Dates: start: 20120306, end: 20130313
  9. DAFLON [Concomitant]
     Indication: VARICOSE VEIN
     Dosage: 1 TABLET, ONCE A DAY
     Route: 048
     Dates: start: 20121201, end: 20130313
  10. ACETYLSALICYLIC ACID [Concomitant]
     Indication: PROPHYLAXIS
     Dosage: 100 MG, ONCE A DAY
     Route: 048
     Dates: start: 20120109, end: 20130310
  11. OMEPRAZOLE [Concomitant]
     Indication: GASTRITIS
     Dosage: 40 MG, ONCE A DAY
     Route: 048
     Dates: start: 20130306, end: 20130312
  12. LEVOFLOXACIN [Concomitant]
     Indication: PNEUMONIA
     Dosage: 500 MG, TWICE A DAY
     Route: 048
     Dates: start: 20130228, end: 20130306
  13. IPRATROPIUM BROMIDE [Concomitant]
     Indication: PNEUMONIA
     Dosage: INHALATION 8 DROPS, 3 TIMES A DAY
     Route: 055
     Dates: start: 20130226, end: 20130306
  14. FENOTEROL BROMIDE [Concomitant]
     Indication: PNEUMONIA
     Dosage: INHALATION, 4 DROPS 3 TIMES A DAY
     Route: 055
     Dates: start: 20130226, end: 20130306
  15. SALINE SOLUTION [Concomitant]
     Indication: PNEUMONIA
     Dosage: 0.9%, INHALATION, 10 ML 3 TIMES A DAY
     Route: 055
     Dates: start: 20130226, end: 20130306
  16. SALBUTAMOL [Concomitant]
     Indication: PNEUMONIA
     Dosage: 5 ML, TWICE A DAY
     Route: 048
     Dates: start: 20130226, end: 20130306

REACTIONS (2)
  - Atrial fibrillation [Recovered/Resolved]
  - Cardiac failure congestive [Recovered/Resolved]
